FAERS Safety Report 12095604 (Version 7)
Quarter: 2018Q1

REPORT INFORMATION
  Report Type: Spontaneous
  Country: US (occurrence: US)
  Receive Date: 20160219
  Receipt Date: 20180312
  Transmission Date: 20180508
  Serious: Yes (Hospitalization, Other)
  Sender: FDA-Public Use
  Company Number: US-ASTRAZENECA-2015SE98331

PATIENT
  Age: 807 Month
  Sex: Female
  Weight: 73.9 kg

DRUGS (63)
  1. FORXIGA [Suspect]
     Active Substance: DAPAGLIFLOZIN
     Indication: TYPE 2 DIABETES MELLITUS
     Dosage: 5.0MG UNKNOWN
     Route: 048
     Dates: start: 20141029, end: 20141119
  2. TRAMADOL. [Concomitant]
     Active Substance: TRAMADOL
     Dates: start: 201402
  3. CATAPRES [Concomitant]
     Active Substance: CLONIDINE HYDROCHLORIDE
     Indication: BLOOD PRESSURE MEASUREMENT
     Dates: start: 20131127
  4. MYSOLINE [Concomitant]
     Active Substance: PRIMIDONE
     Indication: FAMILIAL TREMOR
     Dates: start: 20131127
  5. PLAVIX [Concomitant]
     Active Substance: CLOPIDOGREL BISULFATE
     Indication: ANTICOAGULANT THERAPY
     Route: 048
     Dates: start: 20131203
  6. ASPIRIN. [Concomitant]
     Active Substance: ASPIRIN
     Indication: CARDIAC DISORDER
     Route: 048
     Dates: start: 20131127
  7. XANAX [Concomitant]
     Active Substance: ALPRAZOLAM
     Indication: ANXIETY
     Route: 048
     Dates: start: 201206
  8. SYNTHROID [Concomitant]
     Active Substance: LEVOTHYROXINE SODIUM
     Indication: HYPOTHYROIDISM
     Route: 048
     Dates: start: 20151030
  9. GABAPENTIN. [Concomitant]
     Active Substance: GABAPENTIN
  10. ZIPRASIDONE. [Concomitant]
     Active Substance: ZIPRASIDONE
  11. ONDANSETRON HYDROCHLORIDE. [Concomitant]
     Active Substance: ONDANSETRON HYDROCHLORIDE
  12. PANTOPRAZOLE SODIUM. [Concomitant]
     Active Substance: PANTOPRAZOLE SODIUM
     Dates: start: 20141129
  13. BETHANECHOL CHLORIDE. [Concomitant]
     Active Substance: BETHANECHOL CHLORIDE
     Route: 048
     Dates: start: 20161202
  14. FENOFIBRATE. [Concomitant]
     Active Substance: FENOFIBRATE
     Indication: BLOOD CHOLESTEROL
  15. SIMVASTATIN. [Concomitant]
     Active Substance: SIMVASTATIN
     Indication: BLOOD CHOLESTEROL
     Route: 048
     Dates: start: 20151030
  16. MOBIC [Concomitant]
     Active Substance: MELOXICAM
     Route: 048
     Dates: start: 20131127
  17. SYNTHROID [Concomitant]
     Active Substance: LEVOTHYROXINE SODIUM
     Indication: HYPOTHYROIDISM
     Route: 048
     Dates: start: 20131127
  18. AMBIEN [Concomitant]
     Active Substance: ZOLPIDEM TARTRATE
     Route: 048
     Dates: start: 201206
  19. ZYRTEC [Concomitant]
     Active Substance: CETIRIZINE HYDROCHLORIDE
     Dates: start: 201206
  20. LOPRESSOR [Concomitant]
     Active Substance: METOPROLOL TARTRATE
     Route: 048
     Dates: start: 20141128
  21. LORAZEPAM. [Concomitant]
     Active Substance: LORAZEPAM
     Dates: start: 20141129
  22. KETOROLAC [Concomitant]
     Active Substance: KETOROLAC\KETOROLAC TROMETHAMINE
  23. LASIX [Concomitant]
     Active Substance: FUROSEMIDE
     Dosage: 20.0MG UNKNOWN
     Dates: start: 20150429
  24. K-DUR [Concomitant]
     Active Substance: POTASSIUM CHLORIDE
     Route: 048
     Dates: start: 20141130
  25. JANUVIA [Concomitant]
     Active Substance: SITAGLIPTIN PHOSPHATE
     Indication: DIABETES MELLITUS
     Route: 048
     Dates: start: 201405, end: 201412
  26. GLUCOTROL [Concomitant]
     Active Substance: GLIPIZIDE
     Indication: DIABETES MELLITUS
     Route: 048
  27. GLUCOTROL [Concomitant]
     Active Substance: GLIPIZIDE
     Indication: DIABETES MELLITUS
     Route: 048
     Dates: start: 201409, end: 201412
  28. HYZAAR [Concomitant]
     Active Substance: HYDROCHLOROTHIAZIDE\LOSARTAN POTASSIUM
     Indication: BLOOD PRESSURE MEASUREMENT
     Dosage: 100/25 MG
     Route: 048
     Dates: start: 20131127
  29. LANTUS [Concomitant]
     Active Substance: INSULIN GLARGINE
     Indication: DIABETES MELLITUS
  30. PEPCID [Concomitant]
     Active Substance: FAMOTIDINE
     Route: 048
     Dates: start: 20150128
  31. NORMODYNE [Concomitant]
     Active Substance: LABETALOL HYDROCHLORIDE
     Route: 048
     Dates: start: 20150131
  32. PREDNISOLONE. [Concomitant]
     Active Substance: PREDNISOLONE
  33. BLACK COHOSH [Concomitant]
     Active Substance: BLACK COHOSH
     Dosage: 160.0MG UNKNOWN
  34. PRILOSEC [Concomitant]
     Active Substance: OMEPRAZOLE MAGNESIUM
     Route: 048
     Dates: start: 20131127
  35. PROCARDIA XL [Concomitant]
     Active Substance: NIFEDIPINE
     Dates: start: 20150202
  36. BUMETANIDE. [Concomitant]
     Active Substance: BUMETANIDE
     Dosage: 12.5MG UNKNOWN
     Dates: start: 20141129
  37. ACETAMINOPHEN. [Concomitant]
     Active Substance: ACETAMINOPHEN
     Dates: start: 20141129
  38. VITAMIN D [Concomitant]
     Active Substance: CHOLECALCIFEROL
     Dosage: 50000 UNIT
     Route: 048
  39. COZAAR [Concomitant]
     Active Substance: LOSARTAN POTASSIUM
     Route: 048
     Dates: start: 20150128
  40. QUESTRAN [Concomitant]
     Active Substance: CHOLESTYRAMINE
     Indication: BLOOD CHOLESTEROL
  41. NOVOLOG [Concomitant]
     Active Substance: INSULIN ASPART
     Indication: DIABETES MELLITUS
     Dosage: 100 U/ML
     Dates: start: 20151030
  42. INDERAL [Concomitant]
     Active Substance: PROPRANOLOL HYDROCHLORIDE
     Dates: start: 20131127
  43. TRILIPIX [Concomitant]
     Active Substance: FENOFIBRIC ACID
  44. FLEXERIL [Concomitant]
     Active Substance: CYCLOBENZAPRINE HYDROCHLORIDE
     Route: 048
     Dates: start: 201206
  45. METFORMIN [Concomitant]
     Active Substance: METFORMIN HYDROCHLORIDE
     Dates: start: 201312, end: 201401
  46. PEPCID [Concomitant]
     Active Substance: FAMOTIDINE
     Route: 048
     Dates: start: 20141129
  47. CEFPODOXIME [Concomitant]
     Active Substance: CEFPODOXIME
     Dates: start: 20150202
  48. OFLOXACIN. [Concomitant]
     Active Substance: OFLOXACIN
  49. DIFLUCAN [Concomitant]
     Active Substance: FLUCONAZOLE
     Indication: FUNGAL INFECTION
  50. ZOLOFT [Concomitant]
     Active Substance: SERTRALINE HYDROCHLORIDE
     Indication: DEPRESSION
     Route: 048
     Dates: start: 201007, end: 201411
  51. BUSPIRONE [Concomitant]
     Active Substance: BUSPIRONE HYDROCHLORIDE
  52. ESTRADIOL. [Concomitant]
     Active Substance: ESTRADIOL
     Route: 048
  53. MEROPENEM. [Concomitant]
     Active Substance: MEROPENEM
     Dates: start: 20141129
  54. FORXIGA [Suspect]
     Active Substance: DAPAGLIFLOZIN
     Indication: TYPE 2 DIABETES MELLITUS
     Route: 048
     Dates: start: 20141028
  55. NEXIUM [Concomitant]
     Active Substance: ESOMEPRAZOLE MAGNESIUM
     Indication: GASTROOESOPHAGEAL REFLUX DISEASE
     Route: 048
     Dates: start: 201303
  56. CIPRO [Concomitant]
     Active Substance: CIPROFLOXACIN HYDROCHLORIDE
     Indication: URINARY TRACT INFECTION
  57. ENOXAPARIN SODIUM. [Concomitant]
     Active Substance: ENOXAPARIN SODIUM
     Dates: start: 20141129
  58. HYDROCHLOROTHIAZIDE. [Concomitant]
     Active Substance: HYDROCHLOROTHIAZIDE
     Dosage: 12.5MG UNKNOWN
     Dates: start: 20151031
  59. JANUVIA [Concomitant]
     Active Substance: SITAGLIPTIN PHOSPHATE
     Indication: DIABETES MELLITUS
     Route: 048
  60. HYZAAR [Concomitant]
     Active Substance: HYDROCHLOROTHIAZIDE\LOSARTAN POTASSIUM
     Indication: BLOOD PRESSURE MEASUREMENT
     Route: 048
     Dates: start: 20151030
  61. NORVASC [Concomitant]
     Active Substance: AMLODIPINE BESYLATE
     Indication: BLOOD PRESSURE MEASUREMENT
     Route: 048
     Dates: start: 20131127
  62. NEXIUM [Concomitant]
     Active Substance: ESOMEPRAZOLE MAGNESIUM
     Indication: GASTROOESOPHAGEAL REFLUX DISEASE
     Dosage: 20.0MG UNKNOWN
     Route: 048
  63. MOBIC [Concomitant]
     Active Substance: MELOXICAM
     Dates: start: 2013, end: 201412

REACTIONS (21)
  - Sepsis [Unknown]
  - Coma [Unknown]
  - Cognitive disorder [Unknown]
  - Nosocomial infection [Unknown]
  - Acute kidney injury [Unknown]
  - Urinary tract infection [Unknown]
  - Injury [Unknown]
  - Fungal infection [Unknown]
  - Pneumonia aspiration [Recovering/Resolving]
  - Diabetic neuropathy [Unknown]
  - Urinary tract obstruction [Unknown]
  - Diabetic ketoacidosis [Unknown]
  - Renal failure [Unknown]
  - Chronic kidney disease [Unknown]
  - Hypertensive nephropathy [Unknown]
  - Acute respiratory failure [Unknown]
  - Respiratory distress [Unknown]
  - Clostridium difficile colitis [Unknown]
  - Emotional disorder [Unknown]
  - Amnesia [Unknown]
  - Brain injury [Unknown]

NARRATIVE: CASE EVENT DATE: 201411
